FAERS Safety Report 18512006 (Version 3)
Quarter: 2020Q4

REPORT INFORMATION
  Report Type: Spontaneous
  Country: KE (occurrence: KE)
  Receive Date: 20201117
  Receipt Date: 20201215
  Transmission Date: 20210114
  Serious: Yes (Hospitalization)
  Sender: FDA-Public Use
  Company Number: KE-JNJFOC-20201114760

PATIENT
  Age: 54 Year
  Sex: Male

DRUGS (4)
  1. ZINC. [Concomitant]
     Active Substance: ZINC
  2. VITAMIN C [Concomitant]
     Active Substance: ASCORBIC ACID
  3. ZITHROMAX [Concomitant]
     Active Substance: AZITHROMYCIN DIHYDRATE
  4. RIVAROXABAN [Suspect]
     Active Substance: RIVAROXABAN
     Indication: PULMONARY THROMBOSIS
     Dosage: 10 MG
     Route: 048
     Dates: start: 20201031

REACTIONS (7)
  - Pneumonia [Recovered/Resolved]
  - Pulmonary thrombosis [Unknown]
  - Chest pain [Recovered/Resolved]
  - Cough [Recovered/Resolved]
  - Pyrexia [Recovered/Resolved]
  - Dyspnoea [Recovered/Resolved]
  - SARS-CoV-2 test positive [Unknown]

NARRATIVE: CASE EVENT DATE: 20201031
